FAERS Safety Report 7623191-8 (Version None)
Quarter: 2011Q3

REPORT INFORMATION
  Report Type: 
  Country: None (occurrence: None)
  Receive Date: 20110720
  Receipt Date: 20110713
  Transmission Date: 20111222
  Serious: Yes (Death)
  Sender: FDA-Public Use
  Company Number: PHHY2011US59415

PATIENT
  Sex: Female
  Weight: 60.771 kg

DRUGS (15)
  1. ZOMETA [Suspect]
     Dosage: UNK UKN, UNK
  2. MAALOX PLUS [Concomitant]
     Dosage: UNK UKN, 225-200-25 MG/5 ML
     Route: 048
     Dates: start: 20110519
  3. RISPERIDONE [Concomitant]
     Dosage: 1 DF, AT BEDTIME
     Route: 048
  4. MIACALCIN [Concomitant]
     Dosage: 200 U, UNK
     Route: 045
     Dates: start: 20110519
  5. COLACE [Concomitant]
     Dosage: 1 DF, BID
     Route: 048
     Dates: start: 20110519
  6. FENTANYL-100 [Concomitant]
     Dosage: 100 UG, Q72H
     Route: 062
     Dates: start: 20110412
  7. MULTI-VITAMINS [Concomitant]
     Dosage: 1 DF,DAILY
     Route: 048
     Dates: start: 20110519
  8. ONDANSETRON [Concomitant]
     Dosage: 1 DF, QID
     Route: 048
     Dates: start: 20110428
  9. METOPROLOL TARTRATE [Concomitant]
     Dosage: 3 DF, BID
     Route: 048
     Dates: start: 20110428
  10. MAGNESIUM OXIDE [Concomitant]
     Dosage: 400 MG, UNK
     Route: 048
     Dates: start: 20110519
  11. ZOLPIDEM TARTRATE [Concomitant]
     Dosage: 1 DF, QD
     Route: 048
     Dates: start: 20110428
  12. LORAZEPAM [Concomitant]
     Dosage: 1 DF, Q4H
     Route: 048
     Dates: start: 20110428
  13. LOVENOX [Concomitant]
     Dosage: 60 MG/0.6 ML
     Route: 058
     Dates: start: 20110519
  14. MORPHINE SULFATE [Concomitant]
     Dosage: 10 MG, Q6H
     Route: 048
     Dates: start: 20110511
  15. POTASSIUM CHLORIDE [Concomitant]
     Dosage: 1 DF, BID
     Route: 048
     Dates: start: 20110329

REACTIONS (3)
  - NEOPLASM MALIGNANT [None]
  - NEOPLASM PROGRESSION [None]
  - DIARRHOEA [None]
